FAERS Safety Report 9806471 (Version 1)
Quarter: 2014Q1

REPORT INFORMATION
  Report Type: Spontaneous
  Country: US (occurrence: US)
  Receive Date: 20140109
  Receipt Date: 20140109
  Transmission Date: 20141002
  Serious: Yes (Death, Hospitalization, Other)
  Sender: FDA-Public Use
  Company Number: US-UCBSA-108220

PATIENT
  Age: 33 Year
  Sex: Female

DRUGS (7)
  1. ALPRAZOLAM [Suspect]
  2. HYDROXYCHLOROQUINE SULFATE [Suspect]
     Dosage: 200 MG
  3. METFORMIN [Suspect]
     Dosage: 500 MG
  4. ACETAMINOPHEN/ DIPHENHYDRAMINE [Suspect]
  5. HYDROXYZINE [Suspect]
  6. COCAINE [Suspect]
  7. PREGABALIN [Suspect]
     Dosage: 150  MG

REACTIONS (6)
  - Completed suicide [Fatal]
  - Respiratory depression [Unknown]
  - Bradycardia [Unknown]
  - Hypotension [Unknown]
  - Unresponsive to stimuli [Recovering/Resolving]
  - Bundle branch block left [Unknown]
